FAERS Safety Report 22140095 (Version 1)
Quarter: 2023Q1

REPORT INFORMATION
  Report Type: Other
  Country: JP (occurrence: JP)
  Receive Date: 20230327
  Receipt Date: 20230327
  Transmission Date: 20230417
  Serious: Yes (Other)
  Sender: FDA-Public Use
  Company Number: JP-DENTSPLY-2023SCDP000084

PATIENT
  Age: 44 Year
  Sex: Female

DRUGS (1)
  1. LIDOCAINE HYDROCHLORIDE AND EPINEPHRINE BITARTRATE [Suspect]
     Active Substance: EPINEPHRINE BITARTRATE\LIDOCAINE HYDROCHLORIDE
     Indication: Infiltration anaesthesia
     Dosage: 3.6 MILLILITER TOTAL LIDOCAINE HYDROCHLORIDE 1%, EPINEPHRINE

REACTIONS (1)
  - Facial paralysis [Recovered/Resolved]
